FAERS Safety Report 5374414-X (Version None)
Quarter: 2007Q2

REPORT INFORMATION
  Report Type: 
  Country: None (occurrence: None)
  Receive Date: 20070629
  Receipt Date: 20070621
  Transmission Date: 20071010
  Serious: Yes (Other)
  Sender: FDA-Public Use
  Company Number: ES-AVENTIS-200715532GDDC

PATIENT
  Age: 30 Year
  Sex: Male

DRUGS (2)
  1. ARAVA [Suspect]
     Indication: POLYARTHRITIS
     Dosage: DOSE: UNK
  2. ENBREL [Concomitant]
     Indication: POLYARTHRITIS
     Dosage: DOSE: UNK

REACTIONS (3)
  - CARDIOMYOPATHY [None]
  - DILATATION VENTRICULAR [None]
  - PALPITATIONS [None]
